FAERS Safety Report 4477331-2 (Version None)
Quarter: 2004Q4

REPORT INFORMATION
  Report Type: 
  Country: None (occurrence: None)
  Receive Date: 20041014
  Receipt Date: 20041001
  Transmission Date: 20050328
  Serious: Yes (Hospitalization, Other)
  Sender: FDA-Public Use
  Company Number: 2004062983

PATIENT
  Age: 33 Year
  Sex: Female

DRUGS (4)
  1. GEODON [Suspect]
     Indication: BIPOLAR DISORDER
     Dosage: 80 MG (40 MG, 2 IN 1 D), ORAL
     Route: 048
     Dates: start: 20040804
  2. LAMOTRIGINE [Concomitant]
  3. FLUOXETINE HYDROCHLORIDE [Concomitant]
  4. CLONAZEPAM [Concomitant]

REACTIONS (6)
  - ABNORMAL BEHAVIOUR [None]
  - HYPERSENSITIVITY [None]
  - MENTAL DISORDER [None]
  - MUSCLE CONTRACTIONS INVOLUNTARY [None]
  - NAUSEA [None]
  - VOMITING [None]
